FAERS Safety Report 15565515 (Version 1)
Quarter: 2018Q4

REPORT INFORMATION
  Report Type: Spontaneous
  Country: US (occurrence: US)
  Receive Date: 20181024
  Receipt Date: 20181024
  Transmission Date: 20190205
  Serious: Yes (Hospitalization)
  Sender: FDA-Public Use
  Company Number: None

PATIENT
  Sex: Male

DRUGS (4)
  1. ASPIRN [Concomitant]
     Active Substance: ASPIRIN
  2. DESONIDE. [Concomitant]
     Active Substance: DESONIDE
  3. FOLIC ACID. [Concomitant]
     Active Substance: FOLIC ACID
  4. TACROLIMUS, 0.5 MG [Suspect]
     Active Substance: TACROLIMUS
     Indication: RENAL TRANSPLANT
     Dosage: OTHER FREQUENCY:2 IN AM + 1 IN PM;?
     Route: 048
     Dates: start: 20170725

REACTIONS (2)
  - Hospitalisation [None]
  - Product dose omission [None]
